FAERS Safety Report 10761297 (Version 1)
Quarter: 2015Q1

REPORT INFORMATION
  Report Type: Spontaneous
  Country: US (occurrence: US)
  Receive Date: 20150204
  Receipt Date: 20150204
  Transmission Date: 20150721
  Serious: No
  Sender: FDA-Public Use
  Company Number: US-PFIZER INC-2015046647

PATIENT
  Age: 35 Year
  Sex: Male
  Weight: 77 kg

DRUGS (6)
  1. TRAMADOL [Concomitant]
     Active Substance: TRAMADOL
     Indication: COLITIS
  2. TRAMADOL [Concomitant]
     Active Substance: TRAMADOL
     Indication: IRRITABLE BOWEL SYNDROME
  3. TRAMADOL [Concomitant]
     Active Substance: TRAMADOL
     Indication: GASTROINTESTINAL HYPERMOTILITY
  4. LYRICA [Suspect]
     Active Substance: PREGABALIN
     Indication: RESTLESS LEGS SYNDROME
     Dosage: 75 MG, 4X/DAY
     Route: 048
     Dates: start: 2014, end: 2014
  5. LYRICA [Suspect]
     Active Substance: PREGABALIN
     Dosage: 150 MG, 2X/DAY
     Route: 048
     Dates: start: 2014
  6. TRAMADOL [Concomitant]
     Active Substance: TRAMADOL
     Indication: GASTRIC DISORDER
     Dosage: 50 MG, 4X/DAY
     Route: 048

REACTIONS (2)
  - Gastric disorder [Recovering/Resolving]
  - Pain [Not Recovered/Not Resolved]
